FAERS Safety Report 5656593-X (Version None)
Quarter: 2008Q1

REPORT INFORMATION
  Report Type: 
  Country: None (occurrence: None)
  Receive Date: 20080219
  Receipt Date: 20071221
  Transmission Date: 20080703
  Serious: No
  Sender: FDA-Public Use
  Company Number: WAES 0712USA08563

PATIENT
  Age: 68 Year
  Sex: Female

DRUGS (3)
  1. JANUVIA [Suspect]
     Indication: DIABETES MELLITUS
     Dosage: 100 MG/DAILY/PO
     Route: 048
     Dates: start: 20071001
  2. SYNTHROID [Concomitant]
  3. CORTICOSTEROIDS (UNSPECIFIED) [Concomitant]

REACTIONS (2)
  - NIGHT SWEATS [None]
  - STOMACH DISCOMFORT [None]
